FAERS Safety Report 11525793 (Version 2)
Quarter: 2016Q2

REPORT INFORMATION
  Report Type: Spontaneous
  Country: US (occurrence: US)
  Receive Date: 20150918
  Receipt Date: 20160509
  Transmission Date: 20160815
  Serious: Yes (Hospitalization)
  Sender: FDA-Public Use
  Company Number: US-ACTELION-A-NJ2015-124015

PATIENT
  Age: 45 Year
  Sex: Female

DRUGS (13)
  1. METOLAZONE. [Concomitant]
     Active Substance: METOLAZONE
  2. PROZAC [Concomitant]
     Active Substance: FLUOXETINE HYDROCHLORIDE
  3. AMIODARONE [Concomitant]
     Active Substance: AMIODARONE
  4. SPIRIVA [Concomitant]
     Active Substance: TIOTROPIUM BROMIDE MONOHYDRATE
  5. SYMBICORT [Concomitant]
     Active Substance: BUDESONIDE\FORMOTEROL FUMARATE DIHYDRATE
  6. PROAIR HFA [Concomitant]
     Active Substance: ALBUTEROL SULFATE
  7. LASIX [Concomitant]
     Active Substance: FUROSEMIDE
  8. TRAZODONE [Concomitant]
     Active Substance: TRAZODONE HYDROCHLORIDE
  9. LEVOTHYROXINE. [Concomitant]
     Active Substance: LEVOTHYROXINE
  10. ALDACTONE [Concomitant]
     Active Substance: SPIRONOLACTONE
  11. OPSUMIT [Suspect]
     Active Substance: MACITENTAN
     Indication: PULMONARY ARTERIAL HYPERTENSION
     Dosage: 10 MG, QD
     Route: 048
     Dates: start: 20150529
  12. OPSUMIT [Suspect]
     Active Substance: MACITENTAN
     Dosage: 10 MG, QD
     Route: 048
  13. POTASSIUM [Concomitant]
     Active Substance: POTASSIUM

REACTIONS (5)
  - Liver injury [Recovered/Resolved]
  - Renal disorder [Not Recovered/Not Resolved]
  - Hypotension [Not Recovered/Not Resolved]
  - Oedema [Not Recovered/Not Resolved]
  - Vomiting [Recovered/Resolved]

NARRATIVE: CASE EVENT DATE: 20150907
